FAERS Safety Report 21016086 (Version 3)
Quarter: 2025Q1

REPORT INFORMATION
  Report Type: Spontaneous
  Country: CN (occurrence: CN)
  Receive Date: 20220628
  Receipt Date: 20250223
  Transmission Date: 20250409
  Serious: Yes (Other)
  Sender: ROCHE
  Company Number: CN-ROCHE-3125007

PATIENT
  Age: 43 Year
  Sex: Female

DRUGS (6)
  1. BEVACIZUMAB [Suspect]
     Active Substance: BEVACIZUMAB
     Indication: Non-small cell lung cancer
     Route: 065
  2. PEMETREXED [Suspect]
     Active Substance: PEMETREXED
     Indication: Non-small cell lung cancer
     Route: 065
  3. CARBOPLATIN [Suspect]
     Active Substance: CARBOPLATIN
     Indication: Non-small cell lung cancer
     Route: 065
  4. DACOMITINIB [Concomitant]
     Active Substance: DACOMITINIB
     Dates: start: 202007
  5. OSIMERTINIB [Concomitant]
     Active Substance: OSIMERTINIB
     Dates: start: 202106
  6. PRALSETINIB [Concomitant]
     Active Substance: PRALSETINIB
     Dates: start: 202106

REACTIONS (1)
  - Disease progression [Unknown]

NARRATIVE: CASE EVENT DATE: 20210501
